FAERS Safety Report 18639323 (Version 1)
Quarter: 2020Q4

REPORT INFORMATION
  Report Type: Spontaneous
  Country: US (occurrence: US)
  Receive Date: 20201219
  Receipt Date: 20201219
  Transmission Date: 20210114
  Serious: Yes (Other)
  Sender: FDA-Public Use
  Company Number: US-CADILA HEALTHCARE LIMITED-US-ZYDUS-059217

PATIENT

DRUGS (8)
  1. DEXMEDETOMIDINE. [Interacting]
     Active Substance: DEXMEDETOMIDINE
     Dosage: 1 MICROGRAM/KILOGRAM (PER HOUR)
     Route: 042
  2. FENTANYL. [Suspect]
     Active Substance: FENTANYL
     Dosage: 3 MICROGRAM/KILOGRAM
     Route: 042
  3. CISATRACURIUM. [Concomitant]
     Active Substance: CISATRACURIUM
     Indication: PRODUCT USED FOR UNKNOWN INDICATION
     Dosage: UNK
     Route: 065
  4. DEXMEDETOMIDINE. [Suspect]
     Active Substance: DEXMEDETOMIDINE
     Indication: SEDATION
     Dosage: 0.08 MICROGRAM/KILOGRAM
     Route: 042
  5. TACROLIMUS. [Interacting]
     Active Substance: TACROLIMUS
     Indication: IMMUNOSUPPRESSANT DRUG THERAPY
     Dosage: UNK
     Route: 065
  6. FENTANYL. [Suspect]
     Active Substance: FENTANYL
     Indication: PRODUCT USED FOR UNKNOWN INDICATION
     Dosage: UNK
     Route: 065
  7. MIDAZOLAM. [Concomitant]
     Active Substance: MIDAZOLAM
     Indication: PRODUCT USED FOR UNKNOWN INDICATION
     Dosage: UNK
  8. CISATRACURIUM. [Concomitant]
     Active Substance: CISATRACURIUM
     Dosage: UNK (RESTARTED)

REACTIONS (2)
  - Drug interaction [Recovered/Resolved]
  - Sinus bradycardia [Recovered/Resolved]
